FAERS Safety Report 15901195 (Version 2)
Quarter: 2019Q1

REPORT INFORMATION
  Report Type: Spontaneous
  Country: JP (occurrence: JP)
  Receive Date: 20190201
  Receipt Date: 20190218
  Transmission Date: 20190417
  Serious: Yes (Hospitalization)
  Sender: FDA-Public Use
  Company Number: JP-BIOGEN-2019BI00686217

PATIENT
  Age: 56 Year
  Sex: Female

DRUGS (16)
  1. TECFIDERA [Suspect]
     Active Substance: DIMETHYL FUMARATE
     Route: 048
     Dates: start: 20190117
  2. BAYNAS [Concomitant]
     Active Substance: RAMATROBAN
     Route: 065
  3. TRAMCET [Concomitant]
     Active Substance: ACETAMINOPHEN\TRAMADOL
     Route: 065
  4. PITAVASTATIN CALCIUM [Concomitant]
     Active Substance: PITAVASTATIN CALCIUM
     Route: 065
  5. VITAMEDIN [Concomitant]
     Active Substance: CYANOCOBALAMIN\PYRIDOXINE HYDROCHLORIDE\THIAMINE
     Route: 065
  6. GASCON [Concomitant]
     Active Substance: DIMETHICONE
     Route: 065
  7. TECFIDERA [Suspect]
     Active Substance: DIMETHYL FUMARATE
     Indication: MULTIPLE SCLEROSIS
     Route: 048
     Dates: end: 20190116
  8. ALLEGRA [Concomitant]
     Active Substance: FEXOFENADINE HYDROCHLORIDE
     Route: 065
  9. APLACE [Concomitant]
     Active Substance: TROXIPIDE
     Route: 065
  10. TRANSAMIN [Concomitant]
     Active Substance: TRANEXAMIC ACID
     Route: 065
  11. BIOFERMIN [Concomitant]
     Active Substance: BACILLUS SUBTILIS\LACTOBACILLUS ACIDOPHILUS\STREPTOCOCCUS FAECAIS
     Route: 065
  12. AMITIZA [Concomitant]
     Active Substance: LUBIPROSTONE
     Route: 065
  13. DAIKENCHUTO [Concomitant]
     Active Substance: HERBALS
     Route: 065
  14. LANSOPRAZOLE. [Concomitant]
     Active Substance: LANSOPRAZOLE
     Route: 065
  15. ALENDRONATE [Concomitant]
     Active Substance: ALENDRONATE SODIUM
     Route: 048
  16. TEGRETOL [Concomitant]
     Active Substance: CARBAMAZEPINE
     Route: 065

REACTIONS (5)
  - Vomiting [Recovered/Resolved]
  - General physical condition abnormal [Not Recovered/Not Resolved]
  - Diarrhoea [Recovered/Resolved]
  - Oral discomfort [Recovered/Resolved]
  - Swollen tongue [Recovered/Resolved]

NARRATIVE: CASE EVENT DATE: 20190117
